FAERS Safety Report 9478475 (Version 1)
Quarter: 2013Q3

REPORT INFORMATION
  Report Type: Spontaneous
  Country: FR (occurrence: FR)
  Receive Date: 20130827
  Receipt Date: 20130827
  Transmission Date: 20140515
  Serious: Yes (Hospitalization)
  Sender: FDA-Public Use
  Company Number: FR-ROCHE-1265536

PATIENT
  Age: 68 Year
  Sex: Female

DRUGS (14)
  1. ROACTEMRA [Suspect]
     Indication: AORTITIS
     Route: 041
     Dates: start: 20130417
  2. ROACTEMRA [Suspect]
     Route: 065
     Dates: start: 20130516
  3. ROACTEMRA [Suspect]
     Route: 065
     Dates: start: 20130613
  4. TOBRADEX [Concomitant]
     Indication: CONJUNCTIVITIS
     Route: 065
     Dates: start: 20130620
  5. BORAX [Concomitant]
     Indication: CONJUNCTIVITIS
     Route: 065
     Dates: start: 20130620
  6. CORTANCYL [Concomitant]
  7. ZELITREX [Concomitant]
     Route: 065
  8. BACTRIM FORTE [Concomitant]
     Route: 065
  9. COAPROVEL [Concomitant]
     Dosage: 1 DF IN THE MORNING
     Route: 065
  10. LERCAN [Concomitant]
     Dosage: 1 DF IN THE EVENING
     Route: 065
  11. CACIT D3 [Concomitant]
     Dosage: 1 DF IN THE MORNING AND 1  DF IN THE EVENING
     Route: 065
  12. EUPANTOL [Concomitant]
     Dosage: 1 DF IN THE EVENING
     Route: 065
  13. DAFALGAN [Concomitant]
  14. COLLYRIUM [Concomitant]

REACTIONS (1)
  - Cerebrovascular accident [Recovering/Resolving]
